FAERS Safety Report 13100968 (Version 2)
Quarter: 2017Q1

REPORT INFORMATION
  Report Type: Report from Study
  Country: CA (occurrence: CA)
  Receive Date: 20170110
  Receipt Date: 20170217
  Transmission Date: 20170428
  Serious: Yes (Other)
  Sender: FDA-Public Use
  Company Number: CA-JNJFOC-20170100677

PATIENT
  Age: 9 Year
  Sex: Female
  Weight: 30 kg

DRUGS (4)
  1. REMICADE [Suspect]
     Active Substance: INFLIXIMAB
     Indication: CROHN^S DISEASE
     Dosage: NUMBER 4
     Route: 042
     Dates: start: 20170102
  2. REMICADE [Suspect]
     Active Substance: INFLIXIMAB
     Indication: CROHN^S DISEASE
     Route: 042
  3. REMICADE [Suspect]
     Active Substance: INFLIXIMAB
     Indication: CROHN^S DISEASE
     Route: 042
     Dates: start: 20160926
  4. REMICADE [Suspect]
     Active Substance: INFLIXIMAB
     Indication: CROHN^S DISEASE
     Route: 042
     Dates: start: 20170209

REACTIONS (8)
  - Infusion related reaction [Unknown]
  - Product use issue [Unknown]
  - Decreased appetite [Unknown]
  - General physical health deterioration [Unknown]
  - Off label use [Unknown]
  - Abdominal pain [Recovering/Resolving]
  - Oral pain [Unknown]
  - Vomiting [Unknown]

NARRATIVE: CASE EVENT DATE: 2017
